FAERS Safety Report 10928330 (Version 2)
Quarter: 2016Q3

REPORT INFORMATION
  Report Type: Spontaneous
  Country: FR (occurrence: FR)
  Receive Date: 20150319
  Receipt Date: 20160701
  Transmission Date: 20161109
  Serious: Yes (Death, Disabling, Other)
  Sender: FDA-Public Use
  Company Number: FR-009507513-1502FRA010804

PATIENT
  Age: 19 Year
  Sex: Male
  Weight: 65 kg

DRUGS (1)
  1. PROPECIA [Suspect]
     Active Substance: FINASTERIDE
     Indication: ALOPECIA
     Dosage: 1 MG, QD
     Route: 048
     Dates: start: 2010, end: 2013

REACTIONS (27)
  - Gynaecomastia [Not Recovered/Not Resolved]
  - Blunted affect [Not Recovered/Not Resolved]
  - Suicidal ideation [Not Recovered/Not Resolved]
  - Penile size reduced [Not Recovered/Not Resolved]
  - Libido decreased [Not Recovered/Not Resolved]
  - Disturbance in attention [Not Recovered/Not Resolved]
  - Anxiety [Not Recovered/Not Resolved]
  - Fatigue [Not Recovered/Not Resolved]
  - Asthenia [Fatal]
  - Major depression [Not Recovered/Not Resolved]
  - Genital disorder male [Not Recovered/Not Resolved]
  - Insomnia [Unknown]
  - Erectile dysfunction [Not Recovered/Not Resolved]
  - Food intolerance [Not Recovered/Not Resolved]
  - Sleep disorder [Not Recovered/Not Resolved]
  - Loss of libido [Not Recovered/Not Resolved]
  - Ejaculation failure [Not Recovered/Not Resolved]
  - Drug intolerance [Unknown]
  - Testicular pain [Not Recovered/Not Resolved]
  - Blood testosterone decreased [Unknown]
  - Completed suicide [Fatal]
  - Amnesia [Not Recovered/Not Resolved]
  - Headache [Not Recovered/Not Resolved]
  - Alcohol intolerance [Not Recovered/Not Resolved]
  - Memory impairment [Not Recovered/Not Resolved]
  - Testicular disorder [Not Recovered/Not Resolved]
  - Hyperandrogenism [Fatal]

NARRATIVE: CASE EVENT DATE: 201009
